FAERS Safety Report 9419702 (Version 1)
Quarter: 2013Q3

REPORT INFORMATION
  Report Type: Spontaneous
  Country: GB (occurrence: None)
  Receive Date: 20130723
  Receipt Date: 20130723
  Transmission Date: 20140515
  Serious: Yes (Life-Threatening, Hospitalization, Other)
  Sender: FDA-Public Use
  Company Number: GER/UKI/13/0032042

PATIENT
  Age: 95 Year
  Sex: Male
  Weight: 55.65 kg

DRUGS (9)
  1. CIPROFLOXACIN [Suspect]
     Indication: LOWER RESPIRATORY TRACT INFECTION
     Dosage: 500MG, 2 IN 1 D, ORAL
     Route: 048
     Dates: start: 20121217
  2. WARFARIN [Suspect]
     Indication: ATRIAL FIBRILLATION
     Route: 048
  3. CARBOCISTEINE (CARBOCISTEINE) [Concomitant]
  4. FERROUS FUMARATE (FERROUS FUMARATE) [Concomitant]
  5. FLUTICASONE (FLUTICASONE) [Concomitant]
  6. FUROSEMIDE (FUROSEMIDE) [Concomitant]
  7. IPRATROPIUM (IPRATROPIUJM) [Concomitant]
  8. LANSOPRAZOLE (LANSOPRAZOLE) [Concomitant]
  9. SALBUTAMOL (SALBUTAMOL) [Concomitant]

REACTIONS (8)
  - Haemoptysis [None]
  - Dyspnoea [None]
  - International normalised ratio increased [None]
  - Pneumonia [None]
  - Drug interaction [None]
  - Contraindication to medical treatment [None]
  - Haemoglobin decreased [None]
  - Blood albumin decreased [None]
